FAERS Safety Report 4540493-2 (Version None)
Quarter: 2004Q4

REPORT INFORMATION
  Report Type: 
  Country: None (occurrence: None)
  Receive Date: 20041228
  Receipt Date: 20041208
  Transmission Date: 20050328
  Serious: Yes (Death)
  Sender: FDA-Public Use
  Company Number: 2004S1003635

PATIENT
  Age: 42 Year
  Sex: Female

DRUGS (5)
  1. CLOZAPINE [Suspect]
     Dosage: 50MG BID AND 100MG QHS, ORAL
     Route: 048
     Dates: start: 20040921
  2. DIVALPROEX SODIUM [Concomitant]
  3. FLUOXETINE [Concomitant]
  4. RISPERIDONE [Concomitant]
  5. CEFPODOXIME PROXETIL [Concomitant]

REACTIONS (1)
  - DEATH [None]
